FAERS Safety Report 10109474 (Version 1)
Quarter: 2014Q2

REPORT INFORMATION
  Report Type: Spontaneous
  Country: US (occurrence: None)
  Receive Date: 20140424
  Receipt Date: 20140424
  Transmission Date: 20141212
  Serious: Yes (Disabling)
  Sender: FDA-Public Use
  Company Number: None

PATIENT
  Age: 82 Year
  Sex: Female
  Weight: 56.7 kg

DRUGS (1)
  1. EXELON [Suspect]
     Indication: PARKINSON^S DISEASE
     Dosage: 1 PATCH APPLIED AS MEDICATED PATCH TO SKIN
     Dates: start: 20140331, end: 20140403

REACTIONS (4)
  - Abnormal behaviour [None]
  - Hallucination [None]
  - Fatigue [None]
  - Thinking abnormal [None]
